FAERS Safety Report 9285334 (Version 1)
Quarter: 2013Q2

REPORT INFORMATION
  Report Type: Spontaneous
  Country: US (occurrence: US)
  Receive Date: 20130513
  Receipt Date: 20130513
  Transmission Date: 20140414
  Serious: Yes (Other)
  Sender: FDA-Public Use
  Company Number: US-BRISTOL-MYERS SQUIBB COMPANY-18856955

PATIENT
  Age: 58 Year
  Sex: Female
  Weight: 68.03 kg

DRUGS (9)
  1. ORENCIA FOR INJ [Suspect]
     Indication: RHEUMATOID ARTHRITIS
     Dosage: STARTED 1 YEAR BEFORE.
     Route: 042
     Dates: end: 201212
  2. OMEPRAZOLE [Concomitant]
  3. METHOTREXATE [Concomitant]
     Dosage: 5 PILLS WEEKLY
  4. PREDNISONE [Concomitant]
  5. GLIMEPIRIDE [Concomitant]
  6. FOLIC ACID [Concomitant]
  7. VITAMIN C [Concomitant]
  8. CALCIUM [Concomitant]
  9. MULTIVITAMIN [Concomitant]

REACTIONS (2)
  - Retinal detachment [Unknown]
  - Influenza [Recovered/Resolved]
